FAERS Safety Report 12750374 (Version 1)
Quarter: 2016Q3

REPORT INFORMATION
  Report Type: Report from Study
  Country: US (occurrence: US)
  Receive Date: 20160915
  Receipt Date: 20160915
  Transmission Date: 20161109
  Serious: Yes (Hospitalization)
  Sender: FDA-Public Use
  Company Number: PHEH2016US022765

PATIENT
  Sex: Male

DRUGS (1)
  1. EXJADE [Suspect]
     Active Substance: DEFERASIROX
     Indication: MYELODYSPLASTIC SYNDROME
     Dosage: UNK
     Route: 065
     Dates: end: 20160810

REACTIONS (4)
  - Myelodysplastic syndrome [Unknown]
  - Haemoglobin decreased [Unknown]
  - Malignant neoplasm progression [Unknown]
  - Blood iron increased [Unknown]
